FAERS Safety Report 8183256-1 (Version None)
Quarter: 2012Q1

REPORT INFORMATION
  Report Type: 
  Country: None (occurrence: None)
  Receive Date: 20120305
  Receipt Date: 20120223
  Transmission Date: 20120608
  Serious: Yes (Other)
  Sender: FDA-Public Use
  Company Number: CO-BRISTOL-MYERS SQUIBB COMPANY-16417230

PATIENT
  Age: 45 Year
  Sex: Female

DRUGS (3)
  1. CISPLATIN [Concomitant]
  2. ERBITUX [Suspect]
     Indication: HEAD AND NECK CANCER
     Dosage: 400 MG/M2 LAST DOSE: 20-FEB-2012
     Route: 042
     Dates: start: 20120130
  3. FLUOROURACIL [Concomitant]
     Route: 042
     Dates: start: 20120130

REACTIONS (3)
  - ANXIETY [None]
  - RESPIRATORY DISTRESS [None]
  - RASH [None]
